FAERS Safety Report 8290513-7 (Version None)
Quarter: 2012Q2

REPORT INFORMATION
  Report Type: 
  Country: None (occurrence: None)
  Receive Date: 20120417
  Receipt Date: 20110425
  Transmission Date: 20120825
  Serious: No
  Sender: FDA-Public Use
  Company Number: US-ASTRAZENECA-2011SE23502

PATIENT
  Sex: Female

DRUGS (8)
  1. CALCIUM WITH VITAMIN D [Concomitant]
     Indication: OSTEOPOROSIS
  2. NEXIUM [Suspect]
     Indication: GASTROOESOPHAGEAL REFLUX DISEASE
     Route: 048
     Dates: end: 20100101
  3. CIMETIDINE [Concomitant]
     Dosage: AT NIGHT
  4. NEXIUM [Suspect]
     Indication: EROSIVE OESOPHAGITIS
     Route: 048
     Dates: end: 20100101
  5. NEXIUM [Suspect]
     Route: 048
     Dates: start: 20110401
  6. SYNTHROID [Concomitant]
     Indication: THYROID DISORDER
     Dosage: DAILY
  7. ATENOLOL [Concomitant]
  8. NEXIUM [Suspect]
     Route: 048
     Dates: start: 20110401

REACTIONS (3)
  - OSTEOPOROSIS [None]
  - THYROID DISORDER [None]
  - DYSPHONIA [None]
